FAERS Safety Report 6404942-7 (Version None)
Quarter: 2009Q4

REPORT INFORMATION
  Report Type: 
  Country: None (occurrence: None)
  Receive Date: 20091019
  Receipt Date: 20090916
  Transmission Date: 20100525
  Serious: No
  Sender: FDA-Public Use
  Company Number: US-BAYER-200933135NA

PATIENT
  Sex: Female

DRUGS (1)
  1. AVELOX [Suspect]
     Indication: EAR INFECTION
     Dosage: TOTAL DAILY DOSE: 400 MG  UNIT DOSE: 400 MG
     Dates: start: 20090831, end: 20090901

REACTIONS (5)
  - ANXIETY [None]
  - CHILLS [None]
  - DECREASED APPETITE [None]
  - JOINT CREPITATION [None]
  - NERVOUSNESS [None]
